FAERS Safety Report 8571906 (Version 3)
Quarter: 2014Q2

REPORT INFORMATION
  Report Type: Spontaneous
  Country: JP (occurrence: JP)
  Receive Date: 20120521
  Receipt Date: 20140611
  Transmission Date: 20141212
  Serious: Yes (Other)
  Sender: FDA-Public Use
  Company Number: JP-TEVA-337035ISR

PATIENT
  Age: 70 Year
  Sex: Female

DRUGS (3)
  1. CISPLATIN [Suspect]
     Indication: LUNG NEOPLASM MALIGNANT
     Dosage: 75 MG/M2
     Route: 065
     Dates: start: 2010
  2. PEMETREXED [Concomitant]
     Indication: LUNG NEOPLASM MALIGNANT
     Dosage: 500 MG/M2
     Route: 065
     Dates: start: 2010
  3. BEVACIZUMAB [Concomitant]
     Indication: LUNG NEOPLASM MALIGNANT
     Dosage: 15 MG/KG
     Route: 065
     Dates: start: 2010

REACTIONS (1)
  - Renal salt-wasting syndrome [Recovering/Resolving]
